FAERS Safety Report 4575706-4 (Version None)
Quarter: 2005Q1

REPORT INFORMATION
  Report Type: 
  Country: None (occurrence: None)
  Receive Date: 20050127
  Receipt Date: 20040928
  Transmission Date: 20050727
  Serious: No
  Sender: FDA-Public Use
  Company Number: USA040979683

PATIENT
  Sex: Female

DRUGS (2)
  1. STRATTERA [Suspect]
     Dates: start: 20040701
  2. STIMULANT [Concomitant]

REACTIONS (1)
  - WEIGHT INCREASED [None]
